FAERS Safety Report 17887043 (Version 12)
Quarter: 2021Q4

REPORT INFORMATION
  Report Type: Spontaneous
  Country: CA (occurrence: CA)
  Receive Date: 20200612
  Receipt Date: 20211029
  Transmission Date: 20220303
  Serious: Yes (Other)
  Sender: FDA-Public Use
  Company Number: CA-CELLTRION INC.-2019CA028122

PATIENT

DRUGS (31)
  1. INFLECTRA [Suspect]
     Active Substance: INFLIXIMAB-DYYB
     Indication: Crohn^s disease
     Dosage: 5 MG/KG INDUCTION WEEK 2
     Route: 042
     Dates: start: 20190915
  2. INFLECTRA [Suspect]
     Active Substance: INFLIXIMAB-DYYB
     Dosage: 5 MG/KG INDUCTION WEEK 2
     Route: 042
     Dates: start: 20190925, end: 20190925
  3. INFLECTRA [Suspect]
     Active Substance: INFLIXIMAB-DYYB
     Dosage: 5 MG/KG, INDUCTION WEEK 0
     Route: 042
     Dates: start: 20191108, end: 20191108
  4. INFLECTRA [Suspect]
     Active Substance: INFLIXIMAB-DYYB
     Dosage: 5 MG/KG, 0,2,6 WEEKS, THEN EVERY 8 WEEKS
     Route: 042
     Dates: start: 20191108, end: 20191223
  5. INFLECTRA [Suspect]
     Active Substance: INFLIXIMAB-DYYB
     Dosage: 5 MG/KG, 0,2,6 WEEKS, THEN EVERY 8 WEEKS
     Route: 042
     Dates: start: 20191125
  6. INFLECTRA [Suspect]
     Active Substance: INFLIXIMAB-DYYB
     Dosage: 5 MG/KG, 0,2,6 WEEKS, THEN EVERY 8 WEEKS
     Route: 042
     Dates: start: 20191125
  7. INFLECTRA [Suspect]
     Active Substance: INFLIXIMAB-DYYB
     Dosage: 5 MG/KG, 0,2,6 WEEKS, THEN EVERY 8 WEEKS
     Route: 042
     Dates: start: 20191125
  8. INFLECTRA [Suspect]
     Active Substance: INFLIXIMAB-DYYB
     Dosage: 5 MG/KG, 0,2,6 WEEKS, THEN EVERY 8 WEEKS(INDUCTION WEEK 6)
     Route: 042
     Dates: start: 20191223, end: 20191223
  9. INFLECTRA [Suspect]
     Active Substance: INFLIXIMAB-DYYB
     Dosage: 5 MG/KG, INDUCTION WEEK 6
     Route: 042
     Dates: start: 20191223, end: 20191223
  10. INFLECTRA [Suspect]
     Active Substance: INFLIXIMAB-DYYB
     Dosage: 700 MG RESCUE 5 WEEKS, THEN EVERY 8 WEEKS
     Route: 042
     Dates: start: 20200107, end: 20200107
  11. INFLECTRA [Suspect]
     Active Substance: INFLIXIMAB-DYYB
     Dosage: 700 MG RESCUE 5 WEEKS, THEN EVERY 8 WEEKS
     Route: 042
     Dates: start: 20200107, end: 20200107
  12. INFLECTRA [Suspect]
     Active Substance: INFLIXIMAB-DYYB
     Dosage: 700 MG RESCUE 5 WEEKS, THEN EVERY 8 WEEKS
     Route: 042
     Dates: start: 20200214
  13. INFLECTRA [Suspect]
     Active Substance: INFLIXIMAB-DYYB
     Dosage: 700 MG RESCUE 5 WEEKS, THEN EVERY 8 WEEKS
     Route: 042
     Dates: start: 20200414
  14. INFLECTRA [Suspect]
     Active Substance: INFLIXIMAB-DYYB
     Dosage: 700 MG RESCUE 5 WEEKS, THEN EVERY 8 WEEKS
     Route: 042
     Dates: start: 20200605, end: 20200605
  15. INFLECTRA [Suspect]
     Active Substance: INFLIXIMAB-DYYB
     Dosage: 700 MG RESCUE 5 WEEKS, THEN EVERY 8 WEEKS
     Route: 042
     Dates: start: 20200605, end: 20200605
  16. INFLECTRA [Suspect]
     Active Substance: INFLIXIMAB-DYYB
     Dosage: 700 MG RESCUE 5 WEEKS, THEN EVERY 8 WEEKS
     Route: 042
     Dates: start: 20200605, end: 20200605
  17. INFLECTRA [Suspect]
     Active Substance: INFLIXIMAB-DYYB
     Dosage: 700 MG RESCUE 5 WEEKS, THEN EVERY 8 WEEKS
     Route: 042
     Dates: start: 20200806
  18. INFLECTRA [Suspect]
     Active Substance: INFLIXIMAB-DYYB
     Dosage: 700 MG RESCUE 5 WEEKS, THEN EVERY 8 WEEKS
     Route: 042
     Dates: start: 20200930
  19. INFLECTRA [Suspect]
     Active Substance: INFLIXIMAB-DYYB
     Dosage: 700 MG RESCUE 5 WEEKS, THEN EVERY 8 WEEKS
     Route: 042
     Dates: start: 20201126
  20. INFLECTRA [Suspect]
     Active Substance: INFLIXIMAB-DYYB
     Dosage: 700 MG RESCUE 5 WEEKS, THEN EVERY 8 WEEKS
     Route: 042
     Dates: start: 20210120
  21. INFLECTRA [Suspect]
     Active Substance: INFLIXIMAB-DYYB
     Dosage: 700 MG RESCUE 5 WEEKS, THEN EVERY 8 WEEKS
     Route: 042
     Dates: start: 20210317
  22. INFLECTRA [Suspect]
     Active Substance: INFLIXIMAB-DYYB
     Dosage: 700 MG RESCUE 5 WEEKS, THEN EVERY 8 WEEKS
     Route: 042
     Dates: start: 20210511
  23. INFLECTRA [Suspect]
     Active Substance: INFLIXIMAB-DYYB
     Dosage: 700 MG RESCUE 5 WEEKS, THEN EVERY 8 WEEKS
     Route: 042
     Dates: start: 20210726
  24. INFLECTRA [Suspect]
     Active Substance: INFLIXIMAB-DYYB
     Dosage: 700 MG RESCUE 5 WEEKS, THEN EVERY 8 WEEKS
     Route: 042
     Dates: start: 20210917
  25. AZATHIOPRINE [Concomitant]
     Active Substance: AZATHIOPRINE
     Dosage: 15 MG, UNK
     Route: 065
  26. HYDROCORTISONE [Concomitant]
     Active Substance: HYDROCORTISONE
     Indication: Premedication
     Dosage: 100 MG, UNK
     Route: 042
     Dates: start: 20191223, end: 20191223
  27. HYDROCORTISONE [Concomitant]
     Active Substance: HYDROCORTISONE
     Dosage: 100 MG, UNK
     Route: 042
     Dates: start: 20200107, end: 20200107
  28. HYDROCORTISONE [Concomitant]
     Active Substance: HYDROCORTISONE
     Dosage: 100 MG, UNK
     Dates: start: 20200806, end: 20200806
  29. HYDROCORTISONE [Concomitant]
     Active Substance: HYDROCORTISONE
     Dosage: 100 MG, UNK
     Dates: start: 20200930, end: 20200930
  30. MESALAMINE [Concomitant]
     Active Substance: MESALAMINE
     Dosage: 1 DF
     Route: 065
  31. PREDNISONE [Concomitant]
     Active Substance: PREDNISONE
     Dosage: 1 DF, TAPERING
     Route: 065

REACTIONS (11)
  - Lower gastrointestinal haemorrhage [Recovering/Resolving]
  - Weight decreased [Not Recovered/Not Resolved]
  - Weight increased [Unknown]
  - Blood pressure increased [Not Recovered/Not Resolved]
  - Condition aggravated [Recovering/Resolving]
  - Fatigue [Unknown]
  - Diarrhoea [Unknown]
  - Off label use [Unknown]
  - Intentional product use issue [Unknown]
  - Off label use [Unknown]
  - Inappropriate schedule of product administration [Unknown]

NARRATIVE: CASE EVENT DATE: 20191223
